FAERS Safety Report 16467156 (Version 5)
Quarter: 2020Q3

REPORT INFORMATION
  Report Type: Report from Study
  Country: DE (occurrence: DE)
  Receive Date: 20190624
  Receipt Date: 20190820
  Transmission Date: 20201104
  Serious: Yes (Hospitalization)
  Sender: FDA-Public Use
  Company Number: DE-ROCHE-2340485

PATIENT
  Age: 80 Year
  Sex: Female
  Weight: 67.7 kg

DRUGS (29)
  1. RITUXIMAB. [Suspect]
     Active Substance: RITUXIMAB
     Indication: DIFFUSE LARGE B-CELL LYMPHOMA
     Dosage: DATE OF MOST RECENT DOSE OF RITUXIMAB PRIOR TO FIRST EPISODE:  07/JUN/2019 (619 MG)?DATE OF MOST REC
     Route: 041
     Dates: start: 20190403
  2. PREDNISONE. [Suspect]
     Active Substance: PREDNISONE
     Indication: DIFFUSE LARGE B-CELL LYMPHOMA
     Dosage: DATE OF MOST RECENT DOSE OF PREDNISONE PRIOR TO FIRST EPISODE: 10/JUN/2019 (100 MG)?DATE OF MOST REC
     Route: 048
     Dates: start: 20190403
  3. OXYGEN. [Concomitant]
     Active Substance: OXYGEN
     Indication: HYPERGLYCAEMIA
     Dosage: INHALED, FREQUENCY? OTHER
     Route: 065
     Dates: start: 20190628, end: 20190628
  4. CYCLOPHOSPHAMIDE. [Suspect]
     Active Substance: CYCLOPHOSPHAMIDE
     Indication: DIFFUSE LARGE B-CELL LYMPHOMA
     Dosage: DATE OF MOST RECENT DOSE OF CYCLOPHOSPHAMIDE PRIOR TO FIRST EPISODE: 07/JUN/2019 (1238 MG)?DATE OF M
     Route: 042
     Dates: start: 20190404
  5. DIGITOXIN [Concomitant]
     Active Substance: DIGITOXIN
     Indication: CARDIAC FAILURE
     Route: 048
     Dates: start: 20181010, end: 20190729
  6. INSULIN [Concomitant]
     Active Substance: INSULIN NOS
     Indication: HYPERGLYCAEMIA
     Route: 058
     Dates: start: 20190628, end: 20190628
  7. DOXORUBICIN [Suspect]
     Active Substance: DOXORUBICIN
     Indication: DIFFUSE LARGE B-CELL LYMPHOMA
     Dosage: DATE OF MOST RECENT DOSE OF DOXORUBICIN PRIOR  TO FIRST EPISODE: 07/JUN/2019 (83 MG)?DATE OF MOST RE
     Route: 042
     Dates: start: 20190404
  8. FLUTICASONE;SALMETEROL [Concomitant]
     Active Substance: FLUTICASONE PROPIONATE\SALMETEROL XINAFOATE
     Indication: ASTHMA
  9. AMPHO MORONAL [Concomitant]
     Active Substance: AMPHOTERICIN B
     Dosage: PROPHYLAXIS ORAL TRUSH
     Route: 048
     Dates: start: 20190327
  10. METOCLOPRAMID [METOCLOPRAMIDE] [Concomitant]
     Active Substance: METOCLOPRAMIDE
     Dosage: PROPHYLAXIS NAUSEA DUE TO CHEMOTHERAPY
     Route: 048
     Dates: start: 20190405
  11. PARACETAMOL [Concomitant]
     Active Substance: ACETAMINOPHEN
     Dosage: PROPHYLAXIS INFUSION RELATED REACTION
     Route: 048
     Dates: start: 20190403
  12. TAZOBAC [Concomitant]
     Active Substance: PIPERACILLIN SODIUM\TAZOBACTAM SODIUM
     Indication: STAPHYLOCOCCAL SEPSIS
     Route: 042
     Dates: start: 20190528, end: 20190531
  13. LONQUEX [Concomitant]
     Active Substance: LIPEGFILGRASTIM
     Route: 058
     Dates: start: 20190720, end: 20190720
  14. PANTOZOL [Concomitant]
     Active Substance: PANTOPRAZOLE SODIUM
     Indication: GASTRITIS
     Route: 048
     Dates: start: 20140101
  15. CANDESARTAN. [Concomitant]
     Active Substance: CANDESARTAN
     Indication: HYPERTENSION
     Route: 048
     Dates: start: 20040101
  16. FENTANYL. [Concomitant]
     Active Substance: FENTANYL
     Indication: BONE PAIN
     Dosage: 12 OTHER
     Route: 062
     Dates: start: 20190415, end: 20190808
  17. PREDNISOLONE. [Concomitant]
     Active Substance: PREDNISOLONE
     Indication: GENERAL PHYSICAL HEALTH DETERIORATION
     Route: 048
     Dates: start: 20190314
  18. HUMALOG MIX50/50 [Concomitant]
     Active Substance: INSULIN LISPRO
     Indication: DIABETES MELLITUS
     Route: 058
     Dates: start: 20190101
  19. VERAPAMIL [Concomitant]
     Active Substance: VERAPAMIL HYDROCHLORIDE
     Indication: HYPERTENSION
     Route: 048
     Dates: start: 2004
  20. FLUTICASONE;SALMETEROL [Concomitant]
     Active Substance: FLUTICASONE PROPIONATE\SALMETEROL XINAFOATE
     Indication: ASTHMA
     Dosage: SALMETEROL AND FLUTICASON 50 AND 250 MICRO G?ALLERGY ASTHMA BRONCHIALE
     Route: 050
     Dates: start: 19690101
  21. LONQUEX [Concomitant]
     Active Substance: LIPEGFILGRASTIM
     Indication: BLOOD DISORDER PROPHYLAXIS
     Route: 058
     Dates: start: 20190629, end: 20190629
  22. DEXAMETHASON [DEXAMETHASONE] [Concomitant]
     Active Substance: DEXAMETHASONE
     Route: 042
     Dates: start: 20190718, end: 20190719
  23. POLATUZUMAB VEDOTIN. [Suspect]
     Active Substance: POLATUZUMAB VEDOTIN
     Indication: DIFFUSE LARGE B-CELL LYMPHOMA
     Dosage: DATE OF MOST RECENT DOSE OF POLATUZUMAB VEDOTIN PRIOR TO SAE ONSET FIRST EPISODE : 07/JUN/2019?DATE
     Route: 042
     Dates: start: 20190404
  24. HUMALOG MIX50/50 [Concomitant]
     Active Substance: INSULIN LISPRO
     Dosage: HUMALOG 200
     Route: 058
     Dates: start: 20190101
  25. STEROFUNDIN [Concomitant]
     Active Substance: CALCIUM CHLORIDE\MAGNESIUM CHLORIDE\POTASSIUM CHLORIDE\SODIUM ACETATE\SODIUM CHLORIDE
     Dosage: HYDRATION
     Route: 042
     Dates: start: 20190718, end: 20190719
  26. GRANISETRON [Concomitant]
     Active Substance: GRANISETRON
     Dosage: PROPHYLAXIS NAUSUA DUE TO CHEMOTHERAPIE
     Route: 042
     Dates: start: 20190719, end: 20190719
  27. PLACEBO [Suspect]
     Active Substance: UNSPECIFIED INGREDIENT
     Indication: DIFFUSE LARGE B-CELL LYMPHOMA
     Dosage: DATE OF MOST RECENT DOSE OF VINCRISTINE PRIOR TO SAE ONSET FIRST EPISODE : 07/JUN/2019?DATE OF MOST
     Route: 042
     Dates: start: 20190404
  28. ACICLOVIR [Concomitant]
     Active Substance: ACYCLOVIR
     Dosage: PROPHYLAXIS VIRAL INFECTION
     Route: 048
     Dates: start: 20190405
  29. CLEMASTIN [Concomitant]
     Active Substance: CLEMASTINE
     Dosage: PROPHYLAXIS INFUSION RELATED REACTION
     Route: 042
     Dates: start: 20190403

REACTIONS (1)
  - General physical health deterioration [Recovered/Resolved]

NARRATIVE: CASE EVENT DATE: 20190617
